FAERS Safety Report 7760481-2 (Version None)
Quarter: 2011Q3

REPORT INFORMATION
  Report Type: 
  Country: None (occurrence: None)
  Receive Date: 20110919
  Receipt Date: 20110906
  Transmission Date: 20111222
  Serious: Yes (Other)
  Sender: FDA-Public Use
  Company Number: US-MYLANLABS-2011S1019047

PATIENT
  Age: 9 Year
  Sex: Female

DRUGS (9)
  1. PREDNISONE [Concomitant]
     Indication: ASTHMA
     Dosage: 60MG
     Route: 065
     Dates: start: 20090602
  2. ALBUTEROL [Concomitant]
     Indication: CYSTIC FIBROSIS
     Route: 065
  3. URSODIOL [Concomitant]
     Indication: CYSTIC FIBROSIS
     Route: 065
  4. FLUCONAZOLE [Suspect]
     Indication: VULVOVAGINAL CANDIDIASIS
     Dosage: 100MG
     Route: 048
     Dates: start: 20090721
  5. PULMOZYME [Concomitant]
     Indication: CYSTIC FIBROSIS
     Route: 065
  6. FLUTICASONE PROPIONATE [Interacting]
     Indication: ASTHMA
     Dosage: 110 MICROG/ACTUATION, 2 PUFFS TWICE DAILY VIA SPACER; THEN INCREASED TO 220 MICROG/ACTUATION
     Route: 055
     Dates: start: 20090602, end: 20090925
  7. FLUTICASONE PROPIONATE [Interacting]
     Dosage: 220 MICROG/ACTUATION, 2 PUFFS TWICE DAILY VIA SPACER
     Route: 055
     Dates: start: 20090602, end: 20090925
  8. AZITHROMYCIN [Concomitant]
     Indication: CYSTIC FIBROSIS
     Route: 065
  9. PROPRANOLOL [Concomitant]
     Indication: PORTAL HYPERTENSION
     Route: 065

REACTIONS (3)
  - ADRENAL INSUFFICIENCY [None]
  - DRUG INTERACTION [None]
  - CUSHING'S SYNDROME [None]
